FAERS Safety Report 13588458 (Version 1)
Quarter: 2017Q2

REPORT INFORMATION
  Report Type: Spontaneous
  Country: US (occurrence: US)
  Receive Date: 20170529
  Receipt Date: 20170529
  Transmission Date: 20170830
  Serious: No
  Sender: FDA-Public Use
  Company Number: US-BAUSCH-BL-2017-003375

PATIENT
  Sex: Female

DRUGS (1)
  1. PROLENSA [Suspect]
     Active Substance: BROMFENAC SODIUM
     Indication: EYE INFLAMMATION
     Route: 047

REACTIONS (4)
  - Eye colour change [Not Recovered/Not Resolved]
  - Instillation site erythema [Unknown]
  - Vision blurred [Unknown]
  - Instillation site pain [Unknown]
